FAERS Safety Report 15365850 (Version 1)
Quarter: 2018Q3

REPORT INFORMATION
  Report Type: Spontaneous
  Country: US (occurrence: US)
  Receive Date: 20180910
  Receipt Date: 20180910
  Transmission Date: 20181010
  Serious: No
  Sender: FDA-Public Use
  Company Number: US-PFIZER INC-2018360319

PATIENT
  Age: 3 Year
  Sex: Female

DRUGS (1)
  1. GENOTROPIN [Suspect]
     Active Substance: SOMATROPIN
     Dosage: 0.5 MG, DAILY
     Dates: start: 201612

REACTIONS (10)
  - Blood iron increased [Unknown]
  - Blood glucose decreased [Unknown]
  - Low density lipoprotein increased [Unknown]
  - Blood cholesterol increased [Unknown]
  - Blood creatinine increased [Unknown]
  - Carbon dioxide decreased [Unknown]
  - Non-high-density lipoprotein cholesterol increased [Unknown]
  - Blood urea increased [Unknown]
  - Bone density abnormal [Unknown]
  - Blood triglycerides increased [Unknown]
